FAERS Safety Report 4956850-6 (Version None)
Quarter: 2006Q1

REPORT INFORMATION
  Report Type: 
  Country: None (occurrence: None)
  Receive Date: 20060323
  Receipt Date: 20060310
  Transmission Date: 20060701
  Serious: Yes (Hospitalization)
  Sender: FDA-Public Use
  Company Number: 2006-BP-02746RO

PATIENT
  Age: 57 Year
  Sex: Female

DRUGS (22)
  1. TORSEMIDE [Suspect]
     Indication: CARDIAC FAILURE CONGESTIVE
     Dosage: SEE TEXT
  2. FUROSEMIDE [Suspect]
     Indication: CARDIAC FAILURE CONGESTIVE
     Dosage: SEE TEXT
  3. BUMETANIDE [Suspect]
     Indication: CARDIAC FAILURE CONGESTIVE
     Dosage: SEE TEXT
  4. CARVEDILOL [Concomitant]
  5. VALSARTAN [Concomitant]
  6. WARFARIN SODIUM [Concomitant]
  7. SOTALOL HCL [Concomitant]
  8. PANTOPRAZOLE SODIUM [Concomitant]
  9. ETHACRYNIC ACID (ETACRYNIC ACID) [Concomitant]
  10. SPIRONOLACTONE [Concomitant]
  11. FIBER SUPPLEMENT (PSYLLIUM HYDROPHILIC MUCILLOID) [Concomitant]
  12. LEVOTHYROXINE SODIUM [Concomitant]
  13. DOBUTAMINE (DOBUTAMINE) [Concomitant]
  14. FERROUS SULFATE TAB [Concomitant]
  15. ASCORBIC ACID [Concomitant]
  16. MAGNESIUM GLUCONATE (MAGNESIUM GLUCONATE) [Concomitant]
  17. DOCUSATE (DOCUSATE) [Concomitant]
  18. DIGOXIN [Concomitant]
  19. ERYTHROPOIETIN ALFA (ERYTHROPOIETIN) [Concomitant]
  20. CONJUGATED ESTROGENS (ESTROGENS CONJUGATED) [Concomitant]
  21. ISOSORBIDE DINITRATE [Concomitant]
  22. HEPARIN [Concomitant]

REACTIONS (11)
  - CARDIAC FAILURE [None]
  - CONDITION AGGRAVATED [None]
  - CONTRAINDICATION TO MEDICAL TREATMENT [None]
  - FLUID OVERLOAD [None]
  - INAPPROPRIATE SCHEDULE OF DRUG ADMINISTRATION [None]
  - MYALGIA [None]
  - OEDEMA PERIPHERAL [None]
  - PANCREATITIS [None]
  - PANCREATITIS CHRONIC [None]
  - PULMONARY OEDEMA [None]
  - TREATMENT NONCOMPLIANCE [None]
